FAERS Safety Report 6075912-6 (Version None)
Quarter: 2009Q1

REPORT INFORMATION
  Report Type: 
  Country: None (occurrence: None)
  Receive Date: 20090212
  Receipt Date: 20071121
  Transmission Date: 20090719
  Serious: Yes (Death, Life-Threatening, Hospitalization, Other)
  Sender: FDA-Public Use
  Company Number: US-ASTRAZENECA-2006UW10986

PATIENT
  Age: 45 Year
  Sex: Female
  Weight: 122.5 kg

DRUGS (120)
  1. SEROQUEL [Suspect]
     Indication: DEPRESSION
     Route: 048
     Dates: start: 20040101, end: 20050616
  2. SEROQUEL [Suspect]
     Route: 048
     Dates: start: 20050407
  3. RISPERDAL [Concomitant]
  4. ZYPREXA [Concomitant]
  5. ASCORBIC ACID [Concomitant]
     Route: 048
     Dates: start: 20041222
  6. ASCORBIC ACID [Concomitant]
     Route: 048
  7. ASCORBIC ACID [Concomitant]
     Route: 048
     Dates: start: 20041022
  8. CALCITRIOL [Concomitant]
     Dosage: EVERY WEDNESDAY
     Route: 042
     Dates: end: 20050413
  9. CALCITRIOL [Concomitant]
     Dosage: EVERY SATURDAY
     Route: 058
     Dates: end: 20050413
  10. BENADRYL [Concomitant]
     Indication: PRURITUS
  11. BENADRYL [Concomitant]
     Dates: start: 20050406
  12. LOVENOX [Concomitant]
     Indication: THROMBOSIS PROPHYLAXIS
     Route: 058
  13. TYLENOL [Concomitant]
     Indication: PAIN
     Dosage: EVERY SIX HOURS PRN
  14. ALBUTEROL [Concomitant]
     Indication: WHEEZING
     Dosage: HIGH FLOW NEB
  15. MILK OF MAGNESIA [Concomitant]
     Dosage: EVERY 4 HOURS AS NEEDED
  16. DULCOLAX [Concomitant]
     Indication: CONSTIPATION
     Dosage: 10 MG DAILY AS NEEDED
     Route: 054
  17. DULCOLAX [Concomitant]
     Route: 054
     Dates: start: 20041030
  18. PERCOCET [Concomitant]
     Dosage: ONE TO TWO EVERY 4-6 HOURS AS NEEDED
     Route: 048
  19. ZINC [Concomitant]
     Dosage: THREE TIMES DAILY AS NEEDED
  20. VITAMIN A [Concomitant]
     Dosage: GIVEN AT NOON
     Route: 048
  21. EPOGEN [Concomitant]
     Dosage: EVERY MONDAY
     Route: 058
  22. INSULIN ASPART [Concomitant]
     Route: 058
  23. INSULIN ASPART [Concomitant]
     Route: 058
  24. LANSOPRAZOLE [Concomitant]
     Route: 048
  25. MINERAL OIL [Concomitant]
     Route: 048
     Dates: end: 20050401
  26. SENOKOT [Concomitant]
     Dates: start: 20050407
  27. TOBRAMYCIN [Concomitant]
     Dates: start: 20050408, end: 20050412
  28. ARANESP [Concomitant]
     Dosage: ON MONDAY
     Dates: end: 20050413
  29. ARANESP [Concomitant]
     Dosage: ON MONDAY
     Dates: start: 20050411
  30. ZOLOFT [Concomitant]
     Dates: start: 20050603
  31. ZOLOFT [Concomitant]
     Dates: start: 20050407
  32. ZOLOFT [Concomitant]
     Dates: start: 20050419
  33. ZOLOFT [Concomitant]
     Dosage: 150 MG
     Route: 048
     Dates: start: 20050523
  34. ZOLOFT [Concomitant]
     Route: 048
     Dates: start: 20050603
  35. PYRIDIUM [Concomitant]
     Indication: BLADDER SPASM
     Route: 048
     Dates: start: 20041022, end: 20041024
  36. PYRIDIUM [Concomitant]
     Dosage: TID PRN
     Route: 048
     Dates: start: 20050415
  37. PYRIDIUM [Concomitant]
     Route: 048
     Dates: start: 20050505, end: 20050508
  38. FLAGYL [Concomitant]
     Route: 048
     Dates: start: 20050418, end: 20050501
  39. METOPROLOL TARTRATE [Concomitant]
     Dosage: 50
     Route: 048
     Dates: start: 20050504
  40. METOPROLOL TARTRATE [Concomitant]
     Route: 048
     Dates: start: 20050509
  41. COUMADIN [Concomitant]
  42. COUMADIN [Concomitant]
     Route: 048
     Dates: start: 20050505
  43. COUMADIN [Concomitant]
     Route: 048
     Dates: start: 20050507
  44. COUMADIN [Concomitant]
     Route: 048
     Dates: start: 20050510
  45. COUMADIN [Concomitant]
     Route: 048
     Dates: start: 20050520
  46. COUMADIN [Concomitant]
     Route: 048
     Dates: start: 20050522
  47. COUMADIN [Concomitant]
     Route: 048
     Dates: start: 20050530
  48. COUMADIN [Concomitant]
     Route: 048
     Dates: start: 20050606
  49. COUMADIN [Concomitant]
     Route: 048
     Dates: start: 20050616
  50. GENTAMYCIN SULFATE [Concomitant]
     Dosage: 200 MG/L IRR 50 ML
     Dates: start: 20050509, end: 20050513
  51. COZAAR [Concomitant]
     Route: 048
     Dates: start: 20041021
  52. COZAAR [Concomitant]
     Dates: start: 20050524
  53. COZAAR [Concomitant]
     Route: 048
     Dates: start: 20050511, end: 20050524
  54. PROTONIX [Concomitant]
     Indication: PROPHYLAXIS
     Dates: start: 20050527
  55. PROTONIX [Concomitant]
     Dates: start: 20050405
  56. OXANDRIN [Concomitant]
     Route: 048
     Dates: start: 20050526, end: 20050601
  57. ZANTAC [Concomitant]
     Dates: start: 20050527
  58. ZOCOR [Concomitant]
     Dates: start: 20050406
  59. MAALOX [Concomitant]
     Indication: DYSPEPSIA
     Dosage: EVERY 4-6 HOURS AS NEEDED
     Dates: start: 20050527
  60. MAALOX [Concomitant]
     Dosage: EVERY 6 HOURS AS NEEDED
     Dates: start: 20050406
  61. SIMETHICONE [Concomitant]
     Indication: FLATULENCE
     Dosage: EVERY 6 HOURS AS NEEDED
  62. LANTUS [Concomitant]
     Route: 058
     Dates: end: 20050408
  63. LANTUS [Concomitant]
     Route: 058
     Dates: start: 20050408
  64. LISPRO INSULIN [Concomitant]
     Dosage: 5-13 UNITS TWICE DAILY BEFORE MEALS
     Route: 058
     Dates: start: 20050613
  65. LISPRO INSULIN [Concomitant]
     Dates: start: 20050411
  66. LACTINEX [Concomitant]
     Indication: DIARRHOEA
     Dosage: TWO TABLETS THREE TIMES DAILY
     Dates: start: 20050418
  67. LOPRESSOR [Concomitant]
  68. SODIUM CHLORIDE [Concomitant]
     Dosage: 80 CC X 10 HOURS
     Dates: start: 20041128
  69. SODIUM CHLORIDE [Concomitant]
     Dates: start: 20050407
  70. SODIUM CHLORIDE [Concomitant]
     Route: 042
     Dates: start: 20050425
  71. SODIUM CHLORIDE [Concomitant]
     Dates: start: 20050426
  72. HEPARIN [Concomitant]
     Indication: ILL-DEFINED DISORDER
     Route: 042
     Dates: start: 20050407
  73. IPRATROPIUM BROMIDE [Concomitant]
     Dates: start: 20050406
  74. MYLANTA [Concomitant]
     Dates: start: 20050406
  75. NOVOLIN [Concomitant]
     Dosage: 2-10 UNITS
     Route: 058
     Dates: start: 20050406
  76. ROXICODONE [Concomitant]
     Dosage: 5 MG PRN EVERY 4 HOURS
     Dates: start: 20050406
  77. MICONAZOLE [Concomitant]
     Indication: PROPHYLAXIS
     Dates: start: 20050410
  78. COLACE [Concomitant]
     Dates: start: 20050513
  79. MIRALAX [Concomitant]
     Dosage: 17 GM
     Dates: start: 20050513
  80. MIRALAX [Concomitant]
     Dosage: 17 GM
     Dates: start: 20041101
  81. REMERON [Concomitant]
     Indication: DEPRESSION
     Dosage: 15 MG
     Route: 048
     Dates: start: 20041120
  82. REMERON [Concomitant]
     Dosage: 15 MG
     Dates: start: 20050524
  83. TIGAN [Concomitant]
     Route: 030
     Dates: start: 20050527
  84. COREG [Concomitant]
  85. COREG [Concomitant]
     Route: 048
  86. GLIPIZIDE [Concomitant]
  87. SPIRONOLACTONE [Concomitant]
  88. FLUCONAZOLE [Concomitant]
  89. PREDNISONE [Concomitant]
     Dosage: THREE TIMES DAILY AS NEEDED
  90. AMIODARONE HCL [Concomitant]
  91. METFORMIN HCL [Concomitant]
  92. POLY-IRON [Concomitant]
  93. MORPHINE [Concomitant]
     Route: 048
     Dates: start: 20041022
  94. MORPHINE [Concomitant]
     Route: 048
     Dates: start: 20041104
  95. MORPHINE [Concomitant]
     Route: 048
     Dates: start: 20041201
  96. AMINOSYN [Concomitant]
     Route: 042
     Dates: start: 20041123
  97. DOME PASTE [Concomitant]
     Route: 061
     Dates: start: 20041124
  98. DIABETASOURCE [Concomitant]
     Dates: start: 20041117
  99. BAZA [Concomitant]
     Route: 061
     Dates: start: 20041110
  100. DURAGESIC-100 [Concomitant]
     Dosage: 25 UG/HR
     Route: 061
     Dates: start: 20041101
  101. CHROMAGEN [Concomitant]
     Route: 048
     Dates: start: 20041025
  102. INSULIN [Concomitant]
     Dosage: 70/30
     Route: 058
     Dates: end: 20041024
  103. INSULIN [Concomitant]
     Dosage: 70/30
     Route: 058
     Dates: end: 20041024
  104. INSULIN [Concomitant]
     Dosage: 70/30
     Route: 058
     Dates: start: 20041024
  105. INSULIN [Concomitant]
     Dosage: 70/30
     Route: 058
     Dates: start: 20041024
  106. LEVAQUIN [Concomitant]
     Route: 048
     Dates: start: 20041022
  107. LEVAQUIN [Concomitant]
     Route: 048
     Dates: start: 20041023
  108. LIPITOR [Concomitant]
     Route: 048
  109. ZOLPIDEM TARTRATE [Concomitant]
     Route: 048
     Dates: start: 20041020
  110. MULTIPLE VITAMINS [Concomitant]
     Route: 048
     Dates: start: 20041021
  111. ZINC SULFATE [Concomitant]
     Route: 048
     Dates: start: 20041021
  112. DAKIN'S SOLUTION [Concomitant]
     Route: 061
     Dates: start: 20041128
  113. PROCALAMINE [Concomitant]
     Dosage: 125 CC
     Dates: start: 20041119, end: 20041122
  114. PAXIL [Concomitant]
     Route: 048
     Dates: start: 20041101
  115. LASIX [Concomitant]
     Dosage: 40MG AM AND 40MG PM
     Route: 048
     Dates: start: 20041023, end: 20041023
  116. TAP H2O ENEMA [Concomitant]
     Route: 054
     Dates: start: 20041119
  117. REGLAN [Concomitant]
     Dosage: 10 MG
     Route: 030
     Dates: start: 20041115
  118. IRON SUPPLEMENT [Concomitant]
  119. DEMEROL [Concomitant]
     Dosage: 25-50 MG
     Route: 048
     Dates: start: 20041030, end: 20041030
  120. FREAMINE [Concomitant]
     Dates: start: 20041122

REACTIONS (10)
  - ATRIAL FIBRILLATION [None]
  - CALCIPHYLAXIS [None]
  - CLOSTRIDIUM DIFFICILE COLITIS [None]
  - DIABETES MELLITUS [None]
  - EXTRAPYRAMIDAL DISORDER [None]
  - MALNUTRITION [None]
  - RENAL FAILURE CHRONIC [None]
  - RESPIRATORY ARREST [None]
  - SKIN GRAFT INFECTION [None]
  - URINARY TRACT INFECTION PSEUDOMONAL [None]
